FAERS Safety Report 8834418 (Version 1)
Quarter: 2012Q4

REPORT INFORMATION
  Report Type: 
  Country: US (occurrence: US)
  Receive Date: 20121010
  Receipt Date: 20121010
  Transmission Date: 20130627
  Serious: No
  Sender: FDA-Public Use
  Company Number: US-TEVA-363239USA

PATIENT

DRUGS (1)
  1. QNASL [Suspect]

REACTIONS (1)
  - Therapeutic response unexpected [Unknown]
